FAERS Safety Report 7109692-X (Version None)
Quarter: 2010Q4

REPORT INFORMATION
  Report Type: 
  Country: None (occurrence: None)
  Receive Date: 20101116
  Receipt Date: 20101116
  Transmission Date: 20110411
  Serious: No
  Sender: FDA-Public Use
  Company Number: None

PATIENT
  Sex: Female

DRUGS (1)
  1. IOHEXOL GE HEALTHCARE [Suspect]
     Indication: COMPUTERISED TOMOGRAM
     Dosage: 15 ML IV BOLUS
     Route: 040
     Dates: start: 20101025, end: 20101025

REACTIONS (4)
  - CONTRAST MEDIA REACTION [None]
  - EYE SWELLING [None]
  - NAUSEA [None]
  - VOMITING [None]
